FAERS Safety Report 8573736 (Version 2)
Quarter: 2013Q4

REPORT INFORMATION
  Report Type: Spontaneous
  Country: US (occurrence: US)
  Receive Date: 20120522
  Receipt Date: 20131129
  Transmission Date: 20140711
  Serious: No
  Sender: FDA-Public Use
  Company Number: US-ASTRAZENECA-2012SE24535

PATIENT
  Age: 52 Year
  Sex: Female
  Weight: 77.1 kg

DRUGS (11)
  1. XANAX [Concomitant]
     Indication: ANXIETY
  2. XANAX [Concomitant]
     Indication: PANIC DISORDER
  3. IBUPROFEN [Concomitant]
  4. PERCOCET [Concomitant]
     Indication: FIBROMYALGIA
  5. CYMBALTA [Concomitant]
     Indication: DEPRESSION
  6. PRILOSEC [Suspect]
     Indication: ULCER
     Dosage: GENERIC
     Route: 048
  7. PRILOSEC [Suspect]
     Indication: ULCER
     Route: 048
  8. PRILOSEC [Suspect]
     Indication: ULCER
     Route: 048
     Dates: start: 2013
  9. NEXIUM [Suspect]
     Indication: ULCER
     Route: 048
  10. NEXIUM [Suspect]
     Indication: ULCER
     Route: 048
     Dates: start: 2008, end: 2012
  11. LYRICA [Concomitant]
     Indication: FIBROMYALGIA

REACTIONS (23)
  - Malaise [Unknown]
  - Feeling abnormal [Unknown]
  - Gastric disorder [Unknown]
  - Oesophageal disorder [Unknown]
  - Road traffic accident [Unknown]
  - Aphagia [Unknown]
  - Crying [Unknown]
  - Fibromyalgia [Unknown]
  - Anxiety [Unknown]
  - Panic disorder [Unknown]
  - Neck pain [Unknown]
  - Musculoskeletal pain [Unknown]
  - Intervertebral disc disorder [Unknown]
  - Carpal tunnel syndrome [Unknown]
  - Tendonitis [Unknown]
  - Body height decreased [Unknown]
  - Dysarthria [Unknown]
  - Abdominal discomfort [Unknown]
  - Vomiting [Unknown]
  - Depression [Unknown]
  - Confusional state [Unknown]
  - Intentional drug misuse [Unknown]
  - Drug ineffective [Unknown]
